FAERS Safety Report 24722807 (Version 1)
Quarter: 2024Q4

REPORT INFORMATION
  Report Type: Spontaneous
  Country: US (occurrence: US)
  Receive Date: 20241211
  Receipt Date: 20241211
  Transmission Date: 20250114
  Serious: No
  Sender: ANI
  Company Number: US-ANIPHARMA-2024-US-058125

PATIENT
  Age: 67 Year
  Sex: Male
  Weight: 104.33 kg

DRUGS (26)
  1. COLESTIPOL HYDROCHLORIDE [Suspect]
     Active Substance: COLESTIPOL HYDROCHLORIDE
     Indication: Diarrhoea
     Dosage: PRESCRIBED 1-2 TABS QD (TOOK 2 TABS QD), DECREASED TO 1 TAB QD AT LUNCHTIME.
     Route: 048
     Dates: start: 20241017
  2. LUTEIN [Concomitant]
     Active Substance: LUTEIN
  3. HERBALS\TURMERIC [Concomitant]
     Active Substance: HERBALS\TURMERIC
  4. VITAMINS [Concomitant]
     Active Substance: VITAMINS
  5. VITAMIN B COMPLEX [Concomitant]
     Active Substance: CYANOCOBALAMIN\DEXPANTHENOL\NIACINAMIDE\PYRIDOXINE HYDROCHLORIDE\RIBOFLAVIN 5^-PHOSPHATE SODIUM\THIA
  6. COENZYME Q10 [Concomitant]
     Active Substance: DIETARY SUPPLEMENT\UBIDECARENONE
  7. MENAQUINONE 6 [Concomitant]
     Active Substance: MENAQUINONE 6
  8. MELATONIN [Concomitant]
     Active Substance: MELATONIN
  9. NAC [Concomitant]
  10. COPPER [Concomitant]
     Active Substance: COPPER
  11. ZINC [Concomitant]
     Active Substance: ZINC
  12. LOSARTAN [Concomitant]
     Active Substance: LOSARTAN
  13. VITAMIN D [Concomitant]
     Active Substance: VITAMIN D NOS
  14. VITAMIN E [Concomitant]
     Active Substance: .ALPHA.-TOCOPHEROL
  15. NATTOKINASE [Concomitant]
     Active Substance: NATTOKINASE
  16. Avmacol [Concomitant]
  17. BROCCOLI SPROUT [Concomitant]
     Active Substance: BROCCOLI SPROUT
  18. QUERCETIN [Concomitant]
     Active Substance: QUERCETIN
  19. FIBER THERAPY (CALCIUM POLYCARBOPHIL) [Concomitant]
     Active Substance: CALCIUM POLYCARBOPHIL
  20. AMLODIPINE [Concomitant]
     Active Substance: AMLODIPINE BESYLATE
  21. METFORMIN [Concomitant]
     Active Substance: METFORMIN HYDROCHLORIDE
  22. PRILOSEC [Concomitant]
     Active Substance: OMEPRAZOLE MAGNESIUM
  23. UNSPECIFIED INGREDIENT [Concomitant]
     Active Substance: UNSPECIFIED INGREDIENT
     Dosage: PRN
  24. ATARAX [Concomitant]
     Active Substance: HYDROXYZINE HYDROCHLORIDE
     Dosage: PRN
  25. ASPIRIN [Concomitant]
     Active Substance: ASPIRIN
  26. ZYRTEC [Concomitant]
     Active Substance: CETIRIZINE HYDROCHLORIDE

REACTIONS (5)
  - Constipation [Recovered/Resolved]
  - Abdominal discomfort [Not Recovered/Not Resolved]
  - Flatulence [Not Recovered/Not Resolved]
  - Abdominal distension [Not Recovered/Not Resolved]
  - Product use in unapproved indication [Not Recovered/Not Resolved]

NARRATIVE: CASE EVENT DATE: 20241017
